FAERS Safety Report 7343300-8 (Version None)
Quarter: 2011Q1

REPORT INFORMATION
  Report Type: 
  Country: None (occurrence: None)
  Receive Date: 20110301
  Receipt Date: 20110218
  Transmission Date: 20110831
  Serious: Yes (Death)
  Sender: FDA-Public Use
  Company Number: JP-2011-10299

PATIENT
  Age: 85 Year
  Sex: Female

DRUGS (2)
  1. SAMSCA [Suspect]
     Indication: CARDIAC FAILURE
     Dosage: 15MG MILLIGRAM(S), DAILY DOSE, ORAL; 7.5 MG MILLIGRAM(S) DAILY DOSE, ORAL
     Route: 048
     Dates: start: 20110201, end: 20110208
  2. SAMSCA [Suspect]
     Indication: CARDIAC FAILURE
     Dosage: 15MG MILLIGRAM(S), DAILY DOSE, ORAL; 7.5 MG MILLIGRAM(S) DAILY DOSE, ORAL
     Route: 048
     Dates: start: 20110209, end: 20110215

REACTIONS (5)
  - DYSPNOEA [None]
  - CARDIAC FAILURE [None]
  - DECREASED APPETITE [None]
  - OEDEMA [None]
  - PULMONARY CONGESTION [None]
